FAERS Safety Report 7126442-1 (Version None)
Quarter: 2010Q4

REPORT INFORMATION
  Report Type: 
  Country: None (occurrence: None)
  Receive Date: 20101129
  Receipt Date: 20101015
  Transmission Date: 20110411
  Serious: Yes (Death, Life-Threatening, Hospitalization, Other)
  Sender: FDA-Public Use
  Company Number: US-BAXTER-2008BH010996

PATIENT
  Age: 70 Year
  Sex: Male
  Weight: 89 kg

DRUGS (110)
  1. HEPARIN SODIUM INJECTION [Suspect]
     Indication: ACUTE CORONARY SYNDROME
     Route: 042
     Dates: start: 20080318, end: 20080318
  2. HEPARIN SODIUM INJECTION [Suspect]
     Indication: ACUTE MYOCARDIAL INFARCTION
     Route: 042
     Dates: start: 20080318, end: 20080318
  3. HEPARIN SODIUM INJECTION [Suspect]
     Indication: ATRIAL FIBRILLATION
     Route: 042
     Dates: start: 20080318, end: 20080318
  4. HEPARIN SODIUM INJECTION [Suspect]
     Indication: ATRIAL FLUTTER
     Route: 042
     Dates: start: 20080318, end: 20080318
  5. HEPARIN SODIUM INJECTION [Suspect]
     Indication: CORONARY ARTERY BYPASS
     Route: 042
     Dates: start: 20080318, end: 20080318
  6. HEPARIN SODIUM INJECTION [Suspect]
     Indication: THROMBOSIS PROPHYLAXIS
     Route: 042
     Dates: start: 20080318, end: 20080318
  7. HEPARIN SODIUM INJECTION [Suspect]
     Route: 042
     Dates: start: 20080327, end: 20080327
  8. HEPARIN SODIUM INJECTION [Suspect]
     Route: 042
     Dates: start: 20080327, end: 20080327
  9. HEPARIN SODIUM INJECTION [Suspect]
     Route: 042
     Dates: start: 20080327, end: 20080327
  10. HEPARIN SODIUM INJECTION [Suspect]
     Route: 042
     Dates: start: 20080327, end: 20080327
  11. HEPARIN SODIUM INJECTION [Suspect]
     Route: 042
     Dates: start: 20080327, end: 20080327
  12. HEPARIN SODIUM INJECTION [Suspect]
     Route: 042
     Dates: start: 20080327, end: 20080327
  13. HEPARIN SODIUM INJECTION [Suspect]
     Route: 065
     Dates: start: 20080318, end: 20080320
  14. HEPARIN SODIUM INJECTION [Suspect]
     Route: 065
     Dates: start: 20080318, end: 20080320
  15. HEPARIN SODIUM INJECTION [Suspect]
     Route: 065
     Dates: start: 20080318, end: 20080320
  16. HEPARIN SODIUM INJECTION [Suspect]
     Route: 065
     Dates: start: 20080318, end: 20080320
  17. HEPARIN SODIUM INJECTION [Suspect]
     Route: 065
     Dates: start: 20080318, end: 20080320
  18. HEPARIN SODIUM INJECTION [Suspect]
     Route: 065
     Dates: start: 20080318, end: 20080320
  19. HEPARIN SODIUM INJECTION [Suspect]
     Route: 065
     Dates: start: 20080328, end: 20080328
  20. HEPARIN SODIUM INJECTION [Suspect]
     Route: 065
     Dates: start: 20080328, end: 20080328
  21. HEPARIN SODIUM INJECTION [Suspect]
     Route: 065
     Dates: start: 20080328, end: 20080328
  22. HEPARIN SODIUM INJECTION [Suspect]
     Route: 065
     Dates: start: 20080328, end: 20080328
  23. HEPARIN SODIUM INJECTION [Suspect]
     Route: 065
     Dates: start: 20080328, end: 20080328
  24. HEPARIN SODIUM INJECTION [Suspect]
     Route: 065
     Dates: start: 20080328, end: 20080328
  25. HEPARIN SODIUM INJECTION [Suspect]
     Route: 065
     Dates: start: 20080327, end: 20080328
  26. HEPARIN SODIUM INJECTION [Suspect]
     Route: 065
     Dates: start: 20080327, end: 20080328
  27. HEPARIN SODIUM INJECTION [Suspect]
     Route: 065
     Dates: start: 20080327, end: 20080328
  28. HEPARIN SODIUM INJECTION [Suspect]
     Route: 065
     Dates: start: 20080327, end: 20080328
  29. HEPARIN SODIUM INJECTION [Suspect]
     Route: 065
     Dates: start: 20080327, end: 20080328
  30. HEPARIN SODIUM INJECTION [Suspect]
     Route: 065
     Dates: start: 20080327, end: 20080328
  31. HEPARIN SODIUM INJECTION [Suspect]
     Route: 065
     Dates: start: 20080328, end: 20080328
  32. HEPARIN SODIUM INJECTION [Suspect]
     Route: 065
     Dates: start: 20080328, end: 20080328
  33. HEPARIN SODIUM INJECTION [Suspect]
     Route: 065
     Dates: start: 20080328, end: 20080328
  34. HEPARIN SODIUM INJECTION [Suspect]
     Route: 065
     Dates: start: 20080328, end: 20080328
  35. HEPARIN SODIUM INJECTION [Suspect]
     Route: 065
     Dates: start: 20080328, end: 20080328
  36. HEPARIN SODIUM INJECTION [Suspect]
     Route: 065
     Dates: start: 20080328, end: 20080328
  37. HEPARIN SODIUM INJECTION [Suspect]
     Route: 065
     Dates: start: 20080328, end: 20080328
  38. HEPARIN SODIUM INJECTION [Suspect]
     Route: 065
     Dates: start: 20080328, end: 20080328
  39. HEPARIN SODIUM INJECTION [Suspect]
     Route: 065
     Dates: start: 20080328, end: 20080328
  40. HEPARIN SODIUM INJECTION [Suspect]
     Route: 065
     Dates: start: 20080328, end: 20080328
  41. HEPARIN SODIUM INJECTION [Suspect]
     Route: 065
     Dates: start: 20080328, end: 20080328
  42. HEPARIN SODIUM INJECTION [Suspect]
     Route: 065
     Dates: start: 20080328, end: 20080328
  43. HEPARIN SODIUM INJECTION [Suspect]
     Route: 065
     Dates: start: 20080328, end: 20080328
  44. HEPARIN SODIUM INJECTION [Suspect]
     Route: 065
     Dates: start: 20080328, end: 20080328
  45. HEPARIN SODIUM INJECTION [Suspect]
     Route: 065
     Dates: start: 20080328, end: 20080328
  46. HEPARIN SODIUM INJECTION [Suspect]
     Route: 065
     Dates: start: 20080328, end: 20080328
  47. HEPARIN SODIUM INJECTION [Suspect]
     Route: 065
     Dates: start: 20080328, end: 20080328
  48. HEPARIN SODIUM INJECTION [Suspect]
     Route: 065
     Dates: start: 20080328, end: 20080328
  49. HEPARIN SODIUM INJECTION [Suspect]
     Route: 065
     Dates: start: 20080328, end: 20080328
  50. HEPARIN SODIUM INJECTION [Suspect]
     Route: 065
     Dates: start: 20080328, end: 20080328
  51. HEPARIN SODIUM INJECTION [Suspect]
     Route: 065
     Dates: start: 20080328, end: 20080328
  52. HEPARIN SODIUM INJECTION [Suspect]
     Route: 065
     Dates: start: 20080328, end: 20080328
  53. HEPARIN SODIUM INJECTION [Suspect]
     Route: 065
     Dates: start: 20080328, end: 20080328
  54. HEPARIN SODIUM INJECTION [Suspect]
     Route: 065
     Dates: start: 20080328, end: 20080328
  55. HEPARIN SODIUM INJECTION [Suspect]
     Route: 065
     Dates: start: 20080328, end: 20080328
  56. HEPARIN SODIUM INJECTION [Suspect]
     Route: 065
     Dates: start: 20080328, end: 20080328
  57. HEPARIN SODIUM INJECTION [Suspect]
     Route: 065
     Dates: start: 20080328, end: 20080328
  58. HEPARIN SODIUM INJECTION [Suspect]
     Route: 065
     Dates: start: 20080328, end: 20080328
  59. HEPARIN SODIUM INJECTION [Suspect]
     Route: 065
     Dates: start: 20080328, end: 20080328
  60. HEPARIN SODIUM INJECTION [Suspect]
     Route: 065
     Dates: start: 20080328, end: 20080328
  61. HEPARIN SODIUM INJECTION [Suspect]
     Route: 065
     Dates: start: 20080328, end: 20080328
  62. HEPARIN SODIUM INJECTION [Suspect]
     Route: 065
     Dates: start: 20080328, end: 20080328
  63. HEPARIN SODIUM INJECTION [Suspect]
     Route: 065
     Dates: start: 20080328, end: 20080328
  64. HEPARIN SODIUM INJECTION [Suspect]
     Route: 065
     Dates: start: 20080328, end: 20080328
  65. HEPARIN SODIUM INJECTION [Suspect]
     Route: 065
     Dates: start: 20080328, end: 20080328
  66. HEPARIN SODIUM INJECTION [Suspect]
     Route: 065
     Dates: start: 20080328, end: 20080328
  67. HEPARIN SODIUM 5,000 UNITS IN DEXTROSE 5% [Suspect]
     Indication: ACUTE CORONARY SYNDROME
     Route: 042
     Dates: start: 20080318, end: 20080301
  68. HEPARIN SODIUM 5,000 UNITS IN DEXTROSE 5% [Suspect]
     Indication: ACUTE MYOCARDIAL INFARCTION
     Route: 042
     Dates: start: 20080318, end: 20080301
  69. HEPARIN SODIUM 5,000 UNITS IN DEXTROSE 5% [Suspect]
     Indication: ATRIAL FIBRILLATION
     Route: 042
     Dates: start: 20080318, end: 20080301
  70. HEPARIN SODIUM 5,000 UNITS IN DEXTROSE 5% [Suspect]
     Indication: ATRIAL FLUTTER
     Route: 042
     Dates: start: 20080318, end: 20080301
  71. HEPARIN SODIUM 5,000 UNITS IN DEXTROSE 5% [Suspect]
     Indication: CORONARY ARTERY BYPASS
     Route: 042
     Dates: start: 20080318, end: 20080301
  72. HEPARIN SODIUM 5,000 UNITS IN DEXTROSE 5% [Suspect]
     Indication: THROMBOSIS PROPHYLAXIS
     Route: 042
     Dates: start: 20080318, end: 20080301
  73. HEPARIN SODIUM 5,000 UNITS IN DEXTROSE 5% [Suspect]
     Indication: MITRAL VALVE REPAIR
     Route: 042
     Dates: start: 20080318, end: 20080301
  74. HEPARIN SODIUM 5,000 UNITS IN DEXTROSE 5% [Suspect]
     Indication: TRICUSPID VALVE REPAIR
     Route: 042
     Dates: start: 20080318, end: 20080301
  75. HEPARIN SODIUM 5,000 UNITS IN DEXTROSE 5% [Suspect]
     Indication: COX-MAZE PROCEDURE
     Route: 042
     Dates: start: 20080318, end: 20080301
  76. HEPARIN SODIUM 5,000 UNITS IN DEXTROSE 5% [Suspect]
     Route: 042
     Dates: start: 20080327, end: 20080328
  77. HEPARIN SODIUM 5,000 UNITS IN DEXTROSE 5% [Suspect]
     Route: 042
     Dates: start: 20080327, end: 20080328
  78. HEPARIN SODIUM 5,000 UNITS IN DEXTROSE 5% [Suspect]
     Route: 042
     Dates: start: 20080327, end: 20080328
  79. HEPARIN SODIUM 5,000 UNITS IN DEXTROSE 5% [Suspect]
     Route: 042
     Dates: start: 20080327, end: 20080328
  80. HEPARIN SODIUM 5,000 UNITS IN DEXTROSE 5% [Suspect]
     Route: 042
     Dates: start: 20080327, end: 20080328
  81. HEPARIN SODIUM 5,000 UNITS IN DEXTROSE 5% [Suspect]
     Route: 042
     Dates: start: 20080327, end: 20080328
  82. HEPARIN SODIUM 5,000 UNITS IN DEXTROSE 5% [Suspect]
     Route: 042
     Dates: start: 20080327, end: 20080328
  83. HEPARIN SODIUM 5,000 UNITS IN DEXTROSE 5% [Suspect]
     Route: 042
     Dates: start: 20080327, end: 20080328
  84. HEPARIN SODIUM 5,000 UNITS IN DEXTROSE 5% [Suspect]
     Route: 042
     Dates: start: 20080327, end: 20080328
  85. METFORMIN [Concomitant]
     Indication: PRODUCT USED FOR UNKNOWN INDICATION
     Route: 048
  86. PERCOCET [Concomitant]
     Indication: PAIN
     Route: 065
  87. DARVOCET-N 100 [Concomitant]
     Indication: PAIN
     Route: 065
  88. VICODIN [Concomitant]
     Indication: PAIN
     Route: 065
  89. ACTOS [Concomitant]
     Indication: PRODUCT USED FOR UNKNOWN INDICATION
     Route: 048
  90. LEXAPRO [Concomitant]
     Indication: PRODUCT USED FOR UNKNOWN INDICATION
     Route: 065
  91. SKELAXIN [Concomitant]
     Indication: PRODUCT USED FOR UNKNOWN INDICATION
     Route: 065
  92. AMOXICILLIN [Concomitant]
     Indication: PRODUCT USED FOR UNKNOWN INDICATION
     Route: 065
  93. PREGABALIN [Concomitant]
     Indication: PRODUCT USED FOR UNKNOWN INDICATION
     Route: 065
  94. TETRACYCLINE [Concomitant]
     Indication: PRODUCT USED FOR UNKNOWN INDICATION
     Route: 065
  95. PREVACID [Concomitant]
     Indication: PRODUCT USED FOR UNKNOWN INDICATION
     Route: 065
  96. SEPTRA DS [Concomitant]
     Indication: PRODUCT USED FOR UNKNOWN INDICATION
     Route: 065
  97. PERCODAN-DEMI [Concomitant]
     Indication: PRODUCT USED FOR UNKNOWN INDICATION
     Route: 065
  98. KEFLEX [Concomitant]
     Indication: PRODUCT USED FOR UNKNOWN INDICATION
     Route: 065
  99. ENDODAN [Concomitant]
     Indication: PRODUCT USED FOR UNKNOWN INDICATION
     Route: 065
  100. OXYCODONE HCL [Concomitant]
     Indication: PRODUCT USED FOR UNKNOWN INDICATION
     Route: 065
  101. TYLENOL (CAPLET) [Concomitant]
     Indication: PRODUCT USED FOR UNKNOWN INDICATION
     Route: 065
  102. LOPRESSOR [Concomitant]
     Indication: PRODUCT USED FOR UNKNOWN INDICATION
     Route: 065
  103. NITROSTAT [Concomitant]
     Indication: PRODUCT USED FOR UNKNOWN INDICATION
     Route: 065
  104. ASA [Concomitant]
     Indication: PRODUCT USED FOR UNKNOWN INDICATION
     Route: 065
  105. ROCEPHIN [Concomitant]
     Indication: PRODUCT USED FOR UNKNOWN INDICATION
     Route: 065
  106. ACETYLCYSTEINE [Concomitant]
     Indication: PRODUCT USED FOR UNKNOWN INDICATION
     Route: 065
  107. METOPROLOL TARTRATE [Concomitant]
     Indication: PRODUCT USED FOR UNKNOWN INDICATION
     Route: 065
  108. PIOGLITAZONE [Concomitant]
     Indication: PRODUCT USED FOR UNKNOWN INDICATION
     Route: 065
  109. INSULIN [Concomitant]
     Indication: PRODUCT USED FOR UNKNOWN INDICATION
     Route: 065
  110. CARDIZEM [Concomitant]
     Indication: PRODUCT USED FOR UNKNOWN INDICATION
     Route: 065

REACTIONS (44)
  - ASTHENIA [None]
  - ATRIAL FIBRILLATION [None]
  - ATRIAL FLUTTER [None]
  - BLOODY DISCHARGE [None]
  - CANDIDIASIS [None]
  - CARDIAC VALVE VEGETATION [None]
  - CHOLECYSTITIS ACUTE [None]
  - CONSTIPATION [None]
  - DECREASED APPETITE [None]
  - DEEP VEIN THROMBOSIS [None]
  - DEHYDRATION [None]
  - DIARRHOEA [None]
  - DIZZINESS [None]
  - ENTEROCOCCAL INFECTION [None]
  - FAILURE TO THRIVE [None]
  - HEART RATE IRREGULAR [None]
  - HEPARIN-INDUCED THROMBOCYTOPENIA [None]
  - HYPERGLYCAEMIA [None]
  - HYPERHIDROSIS [None]
  - HYPERKALAEMIA [None]
  - HYPOTENSION [None]
  - HYPOTHYROIDISM [None]
  - MALNUTRITION [None]
  - METABOLIC ENCEPHALOPATHY [None]
  - MOUTH ULCERATION [None]
  - NAUSEA [None]
  - ODYNOPHAGIA [None]
  - PANCYTOPENIA [None]
  - PLEURAL EFFUSION [None]
  - PULMONARY EMBOLISM [None]
  - PULMONARY HYPERTENSION [None]
  - PYREXIA [None]
  - RENAL FAILURE [None]
  - RESPIRATORY FAILURE [None]
  - SEPTIC SHOCK [None]
  - SERRATIA INFECTION [None]
  - STAPHYLOCOCCAL INFECTION [None]
  - SUBCUTANEOUS EMPHYSEMA [None]
  - TACHYCARDIA [None]
  - THROMBOSIS [None]
  - TONGUE PARALYSIS [None]
  - TRANSIENT ISCHAEMIC ATTACK [None]
  - UNRESPONSIVE TO STIMULI [None]
  - URINARY TRACT INFECTION BACTERIAL [None]
